FAERS Safety Report 18275422 (Version 1)
Quarter: 2020Q3

REPORT INFORMATION
  Report Type: Spontaneous
  Country: IT (occurrence: IT)
  Receive Date: 20200917
  Receipt Date: 20200917
  Transmission Date: 20201103
  Serious: Yes (Hospitalization)
  Sender: FDA-Public Use
  Company Number: IT-ASTRAZENECA-2020SF18574

PATIENT
  Age: 48 Year
  Sex: Male

DRUGS (4)
  1. RISPERIDONE. [Suspect]
     Active Substance: RISPERIDONE
     Route: 048
     Dates: start: 20200829, end: 20200905
  2. LITHIUM. [Suspect]
     Active Substance: LITHIUM
     Route: 048
  3. SEROQUEL [Suspect]
     Active Substance: QUETIAPINE FUMARATE
     Route: 048
  4. ALOPERIDOLO GALENICA SENESE [Suspect]
     Active Substance: HALOPERIDOL
     Route: 065
     Dates: start: 20200822, end: 20200901

REACTIONS (5)
  - Hyperthermia [Recovering/Resolving]
  - Hypertonia [Recovering/Resolving]
  - Medication error [Recovering/Resolving]
  - Neuroleptic malignant syndrome [Recovering/Resolving]
  - Rhabdomyolysis [Recovering/Resolving]

NARRATIVE: CASE EVENT DATE: 20200907
